FAERS Safety Report 15754784 (Version 1)
Quarter: 2018Q4

REPORT INFORMATION
  Report Type: Spontaneous
  Country: US (occurrence: US)
  Receive Date: 20181224
  Receipt Date: 20181224
  Transmission Date: 20190205
  Serious: Yes (Other)
  Sender: FDA-Public Use
  Company Number: US-TEVA-2018-US-991984

PATIENT
  Age: 77 Year
  Sex: Male

DRUGS (1)
  1. METOPROLOL 25 MG [Suspect]
     Active Substance: METOPROLOL
     Indication: HYPERTENSION

REACTIONS (1)
  - Stent placement [Unknown]
